FAERS Safety Report 4853799-4 (Version None)
Quarter: 2005Q4

REPORT INFORMATION
  Report Type: 
  Country: None (occurrence: None)
  Receive Date: 20051212
  Receipt Date: 20051129
  Transmission Date: 20060501
  Serious: Yes (Hospitalization, Other)
  Sender: FDA-Public Use
  Company Number: 2005162196

PATIENT
  Age: 63 Year
  Sex: Female
  Weight: 68.0396 kg

DRUGS (3)
  1. ZYRTEC [Suspect]
     Indication: MULTIPLE ALLERGIES
     Dosage: 20 MG (10 MG, 2 IN 1 D)
  2. PROZAC [Concomitant]
  3. VALSARTAN [Concomitant]

REACTIONS (5)
  - CEREBRAL THROMBOSIS [None]
  - CEREBROVASCULAR ACCIDENT [None]
  - FALL [None]
  - KNEE ARTHROPLASTY [None]
  - TRANSIENT ISCHAEMIC ATTACK [None]
